FAERS Safety Report 20028156 (Version 2)
Quarter: 2022Q2

REPORT INFORMATION
  Report Type: Spontaneous
  Country: GB (occurrence: GB)
  Receive Date: 20211103
  Receipt Date: 20220622
  Transmission Date: 20220721
  Serious: Yes (Other)
  Sender: FDA-Public Use
  Company Number: GB-MLMSERVICE-20211021-3180148-1

PATIENT
  Age: 30 Year
  Sex: Male

DRUGS (11)
  1. LINEZOLID [Suspect]
     Active Substance: LINEZOLID
     Indication: Meningitis tuberculous
     Dosage: 600 MILLIGRAM, TWO TIMES A DAY
     Route: 065
  2. LINEZOLID [Suspect]
     Active Substance: LINEZOLID
     Dosage: 600 MILLIGRAM, ONCE A DAY
  3. PYRAZINAMIDE [Suspect]
     Active Substance: PYRAZINAMIDE
     Indication: Meningitis tuberculous
     Dosage: 2 GRAM, ONCE A DAY
     Route: 048
  4. ASPIRIN [Concomitant]
     Active Substance: ASPIRIN
     Indication: Central nervous system vasculitis
     Dosage: UNK
     Route: 065
  5. DEXAMETHASONE [Concomitant]
     Active Substance: DEXAMETHASONE
     Indication: Meningitis tuberculous
     Dosage: 0.3 MILLIGRAM/KILOGRAM, ONCE A DAY
     Route: 042
  6. ISONIAZID [Concomitant]
     Active Substance: ISONIAZID
     Indication: Meningitis tuberculous
     Dosage: 300 MILLIGRAM
     Route: 042
  7. LEVOFLOXACIN [Concomitant]
     Active Substance: LEVOFLOXACIN
     Indication: Meningitis tuberculous
     Dosage: 500 MILLIGRAM, TWO TIMES A DAY (BD)
     Route: 065
  8. RIFAMPIN [Concomitant]
     Active Substance: RIFAMPIN
     Indication: Meningitis tuberculous
     Dosage: 600 MILLIGRAM, ONCE A DAY
     Route: 042
  9. RIFAMPIN [Concomitant]
     Active Substance: RIFAMPIN
     Dosage: 1200 MILLIGRAM, ONCE A DAY
     Route: 042
  10. THALIDOMIDE [Concomitant]
     Active Substance: THALIDOMIDE
     Indication: Central nervous system vasculitis
     Dosage: 100 MILLIGRAM, TWO TIMES A DAY (BD)
     Route: 065
  11. THALIDOMIDE [Concomitant]
     Active Substance: THALIDOMIDE
     Dosage: 50 MILLIGRAM (EVERY 3 DAYS)
     Route: 065

REACTIONS (2)
  - Neuropathy peripheral [Unknown]
  - Blood uric acid increased [Unknown]
